FAERS Safety Report 12389324 (Version 1)
Quarter: 2016Q2

REPORT INFORMATION
  Report Type: Spontaneous
  Country: IT (occurrence: IT)
  Receive Date: 20160520
  Receipt Date: 20160520
  Transmission Date: 20160815
  Serious: Yes (Hospitalization, Other)
  Sender: FDA-Public Use
  Company Number: IT-MEDA-2016050055

PATIENT
  Age: 61 Year
  Sex: Male

DRUGS (8)
  1. PAROXETINE. [Suspect]
     Active Substance: PAROXETINE
     Indication: DEPRESSED MOOD
     Dates: start: 201311
  2. ZOLPIDEM [Suspect]
     Active Substance: ZOLPIDEM\ZOLPIDEM TARTRATE
     Indication: INSOMNIA
     Dates: start: 201311
  3. PAROXETINE. [Suspect]
     Active Substance: PAROXETINE
     Indication: INSOMNIA
     Dates: start: 201311
  4. INTERFERON [Concomitant]
     Active Substance: INTERFERON
     Dates: start: 200309
  5. VENLAFAXINE [Suspect]
     Active Substance: VENLAFAXINE HYDROCHLORIDE
     Indication: INSOMNIA
     Dates: start: 201311
  6. VENLAFAXINE [Suspect]
     Active Substance: VENLAFAXINE HYDROCHLORIDE
     Indication: DEPRESSED MOOD
     Dates: start: 201311
  7. ZOLPIDEM [Suspect]
     Active Substance: ZOLPIDEM\ZOLPIDEM TARTRATE
     Indication: DEPRESSED MOOD
     Dates: start: 201311
  8. TENOFOVIR DISOPROXIL FUMARATE. [Suspect]
     Active Substance: TENOFOVIR DISOPROXIL FUMARATE
     Indication: CHRONIC HEPATITIS B
     Dates: start: 201303, end: 201401

REACTIONS (2)
  - Hepatitis B [Unknown]
  - Drug interaction [Unknown]
